FAERS Safety Report 9871236 (Version 6)
Quarter: 2015Q4

REPORT INFORMATION
  Report Type: Spontaneous
  Country: US (occurrence: US)
  Receive Date: 20140205
  Receipt Date: 20151021
  Transmission Date: 20160305
  Serious: Yes (Hospitalization, Other)
  Sender: FDA-Public Use
  Company Number: US-GLAXOSMITHKLINE-A1058535A

PATIENT
  Sex: Female

DRUGS (19)
  1. NEXIUM [Concomitant]
     Active Substance: ESOMEPRAZOLE MAGNESIUM
  2. XANAX [Concomitant]
     Active Substance: ALPRAZOLAM
  3. VITAMIN B12 AND FOLIC ACID [Concomitant]
  4. DILANTIN [Concomitant]
     Active Substance: PHENYTOIN
  5. ADVAIR DISKUS [Suspect]
     Active Substance: FLUTICASONE PROPIONATE\SALMETEROL XINAFOATE
     Indication: CHRONIC OBSTRUCTIVE PULMONARY DISEASE
     Dosage: 1 PUFF(S), BID
     Dates: start: 2009
  6. ADVAIR DISKUS [Suspect]
     Active Substance: FLUTICASONE PROPIONATE\SALMETEROL XINAFOATE
     Dosage: UNK
  7. CREON [Concomitant]
     Active Substance: PANCRELIPASE AMYLASE\PANCRELIPASE LIPASE\PANCRELIPASE PROTEASE
  8. IPRATROPIUM [Concomitant]
     Active Substance: IPRATROPIUM
  9. PLAVIX [Concomitant]
     Active Substance: CLOPIDOGREL BISULFATE
  10. ADVAIR DISKUS [Suspect]
     Active Substance: FLUTICASONE PROPIONATE\SALMETEROL XINAFOATE
     Indication: EMPHYSEMA
     Dosage: 1 PUFF(S), BID
     Dates: start: 2009
  11. CARAFATE [Concomitant]
     Active Substance: SUCRALFATE
  12. THEOPHYLLINE [Concomitant]
     Active Substance: THEOPHYLLINE ANHYDROUS
  13. ALBUTEROL. [Concomitant]
     Active Substance: ALBUTEROL
  14. DILTIAZEM [Concomitant]
     Active Substance: DILTIAZEM
  15. ASPIRIN. [Concomitant]
     Active Substance: ASPIRIN
  16. BACLOFEN. [Concomitant]
     Active Substance: BACLOFEN
  17. POTASSIUM CHLORIDE. [Concomitant]
     Active Substance: POTASSIUM CHLORIDE
  18. FLONASE [Concomitant]
     Active Substance: FLUTICASONE PROPIONATE
  19. NORCO [Concomitant]
     Active Substance: ACETAMINOPHEN\HYDROCODONE BITARTRATE

REACTIONS (57)
  - Pancreatitis [Not Recovered/Not Resolved]
  - Oxygen supplementation [Unknown]
  - Anxiety [Unknown]
  - Lymphadenopathy [Unknown]
  - Muscle spasms [Unknown]
  - Ear pain [Unknown]
  - Dysphagia [Unknown]
  - Arthralgia [Unknown]
  - Syncope [Unknown]
  - Pollakiuria [Unknown]
  - Back pain [Unknown]
  - Fatigue [Unknown]
  - Feeling abnormal [Unknown]
  - Jaundice [Unknown]
  - Weight gain poor [Unknown]
  - Nausea [Unknown]
  - Adverse event [Unknown]
  - Oropharyngeal pain [Unknown]
  - Haemoptysis [Unknown]
  - Odynophagia [Unknown]
  - Pelvic mass [Unknown]
  - Pulmonary mass [Unknown]
  - Oedema peripheral [Unknown]
  - Rectal haemorrhage [Unknown]
  - Wheezing [Unknown]
  - Pelvic pain [Unknown]
  - Pain in extremity [Unknown]
  - Iron deficiency [Unknown]
  - Hospitalisation [Recovered/Resolved]
  - Lung disorder [Not Recovered/Not Resolved]
  - Vomiting [Unknown]
  - Dizziness [Unknown]
  - Hepatomegaly [Unknown]
  - Ill-defined disorder [Not Recovered/Not Resolved]
  - Pulmonary congestion [Unknown]
  - Melaena [Unknown]
  - Headache [Unknown]
  - Cholecystectomy [Unknown]
  - Malaise [Not Recovered/Not Resolved]
  - Underweight [Unknown]
  - Dyspepsia [Unknown]
  - Diarrhoea [Unknown]
  - Cardiovascular disorder [Unknown]
  - Dysuria [Unknown]
  - VIIth nerve paralysis [Unknown]
  - Insomnia [Unknown]
  - Splenomegaly [Unknown]
  - Stent placement [Unknown]
  - Memory impairment [Not Recovered/Not Resolved]
  - Asthenia [Not Recovered/Not Resolved]
  - Dyspnoea [Unknown]
  - Abdominal pain [Unknown]
  - Swelling [Unknown]
  - Cough [Unknown]
  - Pyrexia [Unknown]
  - Anaemia [Unknown]
  - Slow response to stimuli [Unknown]

NARRATIVE: CASE EVENT DATE: 2012
